FAERS Safety Report 4524435-1 (Version None)
Quarter: 2004Q4

REPORT INFORMATION
  Report Type: 
  Country: None (occurrence: None)
  Receive Date: 20041116
  Receipt Date: 20040813
  Transmission Date: 20050328
  Serious: No
  Sender: FDA-Public Use
  Company Number: PHEH2004US07695

PATIENT
  Age: 78 Year
  Sex: Male
  Weight: 96.1 kg

DRUGS (6)
  1. GLEEVEC [Suspect]
     Indication: CHRONIC MYELOID LEUKAEMIA
     Dosage: 400 MG, QD, ORAL
     Route: 048
     Dates: start: 20010101
  2. GLEEVEC [Suspect]
     Indication: CHRONIC MYELOID LEUKAEMIA
     Dosage: 400 MG, QD, ORAL
     Route: 048
     Dates: start: 20040601
  3. TOPROL-XL [Concomitant]
  4. LUPRON (LEUPRORELEIN ACETATE) [Concomitant]
  5. NORVASC [Concomitant]
  6. ASPIRIN [Concomitant]

REACTIONS (5)
  - ACCIDENTAL OVERDOSE [None]
  - FATIGUE [None]
  - MUSCLE CRAMP [None]
  - RASH [None]
  - STOMACH DISCOMFORT [None]
